FAERS Safety Report 12615691 (Version 5)
Quarter: 2017Q3

REPORT INFORMATION
  Report Type: Report from Study
  Country: IT (occurrence: IT)
  Receive Date: 20160802
  Receipt Date: 20170816
  Transmission Date: 20171127
  Serious: Yes (Hospitalization)
  Sender: FDA-Public Use
  Company Number: IT-CELGENEUS-ITA-2016025600

PATIENT
  Age: 67 Year
  Sex: Male
  Weight: 60 kg

DRUGS (18)
  1. CYCLOPHOSPHAMIDE. [Suspect]
     Active Substance: CYCLOPHOSPHAMIDE
     Indication: DIFFUSE LARGE B-CELL LYMPHOMA
     Dosage: 1275 MILLIGRAM
     Route: 041
     Dates: start: 20160115
  2. CARDIOASPIRIN [Concomitant]
     Active Substance: ASPIRIN
     Indication: THROMBOSIS PROPHYLAXIS
     Dosage: 100 MILLIGRAM
     Route: 048
     Dates: start: 20160114, end: 20160829
  3. DOXORUBICIN [Suspect]
     Active Substance: DOXORUBICIN
     Dosage: 50 MILLIGRAM/SQ. METER
     Route: 041
     Dates: start: 20160205, end: 20160205
  4. FILGRASTIM [Concomitant]
     Active Substance: FILGRASTIM
     Indication: PROPHYLAXIS
     Dosage: 30 IU (INTERNATIONAL UNIT)
     Route: 058
     Dates: start: 20160121, end: 20160829
  5. ALLOPURINOL. [Concomitant]
     Active Substance: ALLOPURINOL
     Indication: PROPHYLAXIS
     Dosage: 300 MILLIGRAM
     Route: 048
     Dates: start: 20160114, end: 20160829
  6. CYCLOPHOSPHAMIDE. [Suspect]
     Active Substance: CYCLOPHOSPHAMIDE
     Dosage: 750 MILLIGRAM/SQ. METER
     Route: 041
     Dates: start: 20160205
  7. DOXORUBICIN [Suspect]
     Active Substance: DOXORUBICIN
     Indication: DIFFUSE LARGE B-CELL LYMPHOMA
     Dosage: 50 MILLIGRAM/SQ. METER
     Route: 041
     Dates: start: 20160115
  8. RITUXIMAB. [Suspect]
     Active Substance: RITUXIMAB
     Indication: DIFFUSE LARGE B-CELL LYMPHOMA
     Route: 041
     Dates: start: 20160114
  9. VINCRISTINE [Suspect]
     Active Substance: VINCRISTINE
     Dosage: 1.4 MILLIGRAM/SQ. METER
     Route: 041
     Dates: start: 20160205, end: 20160205
  10. PREDNISONE. [Suspect]
     Active Substance: PREDNISONE
     Indication: DIFFUSE LARGE B-CELL LYMPHOMA
     Dosage: 100 MILLIGRAM
     Route: 048
     Dates: start: 20160115
  11. CC-5013 [Suspect]
     Active Substance: LENALIDOMIDE
     Dosage: 15 MILLIGRAM
     Route: 048
     Dates: start: 20160205, end: 20160212
  12. CC-5013 [Suspect]
     Active Substance: LENALIDOMIDE
     Dosage: 15 MILLIGRAM
     Route: 048
     Dates: start: 20160412
  13. VINCRISTINE [Suspect]
     Active Substance: VINCRISTINE
     Indication: DIFFUSE LARGE B-CELL LYMPHOMA
     Dosage: 1.4 MILLIGRAM/SQ. METER
     Route: 041
     Dates: start: 20160115
  14. BACTRIM [Concomitant]
     Active Substance: SULFAMETHOXAZOLE\TRIMETHOPRIM
     Indication: ANTIFUNGAL PROPHYLAXIS
     Dosage: 160/180
     Route: 048
     Dates: start: 20160114, end: 20160829
  15. CC-5013 [Suspect]
     Active Substance: LENALIDOMIDE
     Indication: DIFFUSE LARGE B-CELL LYMPHOMA
     Dosage: 15 MILLIGRAM
     Route: 048
     Dates: start: 20160115
  16. RITUXIMAB. [Suspect]
     Active Substance: RITUXIMAB
     Route: 041
     Dates: start: 20160204, end: 20160204
  17. PREDNISONE. [Suspect]
     Active Substance: PREDNISONE
     Dosage: 100 MILLIGRAM
     Route: 048
     Dates: start: 20160205, end: 20160205
  18. LANSOPRAZOLE. [Concomitant]
     Active Substance: LANSOPRAZOLE
     Indication: GASTRITIS PROPHYLAXIS
     Dosage: 30 MILLIGRAM
     Route: 048
     Dates: start: 20160114, end: 20160829

REACTIONS (3)
  - Bile duct stone [Recovered/Resolved]
  - Jaundice cholestatic [Recovered/Resolved]
  - Pyrexia [Recovered/Resolved]

NARRATIVE: CASE EVENT DATE: 20160217
